FAERS Safety Report 6707014-7 (Version None)
Quarter: 2010Q2

REPORT INFORMATION
  Report Type: 
  Country: None (occurrence: None)
  Receive Date: 20100430
  Receipt Date: 20100430
  Transmission Date: 20101027
  Serious: Yes (Other)
  Sender: FDA-Public Use
  Company Number: None

PATIENT
  Sex: Male

DRUGS (1)
  1. STRATTERA [Suspect]
     Indication: ATTENTION DEFICIT/HYPERACTIVITY DISORDER
     Dosage: 80 MG QAM PO
     Route: 048

REACTIONS (4)
  - CHILLS [None]
  - DIZZINESS [None]
  - ERECTILE DYSFUNCTION [None]
  - URINARY RETENTION [None]
